FAERS Safety Report 4307750-6 (Version None)
Quarter: 2004Q1

REPORT INFORMATION
  Report Type: 
  Country: None (occurrence: None)
  Receive Date: 20040227
  Receipt Date: 20040227
  Transmission Date: 20041129
  Serious: Yes (Disabling, Other)
  Sender: FDA-Public Use
  Company Number: None

PATIENT
  Age: 54 Year
  Sex: Female
  Weight: 68.0396 kg

DRUGS (1)
  1. PAXIL [Suspect]
     Dosage: 2 X'S DAILY REDUCED TO ONE TIME

REACTIONS (6)
  - DIZZINESS [None]
  - FEELING ABNORMAL [None]
  - HYPERHIDROSIS [None]
  - NAUSEA [None]
  - NERVOUS SYSTEM DISORDER [None]
  - VERTIGO [None]
